FAERS Safety Report 4519586-1 (Version None)
Quarter: 2004Q4

REPORT INFORMATION
  Report Type: 
  Country: None (occurrence: None)
  Receive Date: 20041101
  Receipt Date: 20031020
  Transmission Date: 20050328
  Serious: Yes (Other)
  Sender: FDA-Public Use
  Company Number: HQWYE980330APR03

PATIENT
  Age: 60 Year
  Sex: Female
  Weight: 78.09 kg

DRUGS (7)
  1. PREMARIN [Suspect]
     Dosage: 0.625MG DAILY
     Dates: start: 19851101
  2. PREVACID [Concomitant]
  3. PLAVIX [Concomitant]
  4. HYDROCHLOROTHIAZIDE [Concomitant]
  5. SINGULAIR [Concomitant]
  6. LOVASTATIN [Concomitant]
  7. ASPIRIN [Concomitant]

REACTIONS (2)
  - CEREBROVASCULAR ACCIDENT [None]
  - CERVICAL DYSPLASIA [None]
